FAERS Safety Report 7572361-6 (Version None)
Quarter: 2011Q2

REPORT INFORMATION
  Report Type: 
  Country: None (occurrence: None)
  Receive Date: 20110624
  Receipt Date: 20110622
  Transmission Date: 20111010
  Serious: Yes (Death)
  Sender: FDA-Public Use
  Company Number: CL-ABBOTT-11P-034-0729536-00

PATIENT
  Sex: Male
  Weight: 1.006 kg

DRUGS (1)
  1. SYNAGIS [Suspect]
     Indication: ANTIVIRAL PROPHYLAXIS
     Route: 030
     Dates: start: 20110516, end: 20110516

REACTIONS (13)
  - PULMONARY SEPSIS [None]
  - INTESTINAL PERFORATION [None]
  - CONVULSION [None]
  - HYDROCEPHALUS [None]
  - MALNUTRITION [None]
  - METABOLIC ACIDOSIS [None]
  - RENAL FAILURE [None]
  - RICKETS [None]
  - SEPSIS [None]
  - DEHYDRATION [None]
  - HYPONATRAEMIA [None]
  - GASTROENTERITIS ROTAVIRUS [None]
  - NECROTISING COLITIS [None]
